FAERS Safety Report 9148404 (Version 1)
Quarter: 2013Q1

REPORT INFORMATION
  Report Type: Spontaneous
  Country: CR (occurrence: CR)
  Receive Date: 20130308
  Receipt Date: 20130308
  Transmission Date: 20140127
  Serious: Yes (Other)
  Sender: FDA-Public Use
  Company Number: PHHY2013CR022197

PATIENT
  Age: 75 Year
  Sex: Male

DRUGS (3)
  1. EXELON PATCH [Suspect]
     Dosage: 9.5 MG, DAILY
     Route: 062
  2. SINEMET [Concomitant]
     Indication: PARKINSON^S DISEASE
     Dosage: 1 DF, TID
     Route: 048
  3. LEVODOPA [Concomitant]
     Indication: PARKINSON^S DISEASE
     Dosage: 1 DF, TID
     Route: 048

REACTIONS (2)
  - Psoriasis [Unknown]
  - Eczema [Unknown]
